FAERS Safety Report 5827426-3 (Version None)
Quarter: 2008Q3

REPORT INFORMATION
  Report Type: 
  Country: None (occurrence: None)
  Receive Date: 20080730
  Receipt Date: 20080724
  Transmission Date: 20090109
  Serious: Yes (Hospitalization)
  Sender: FDA-Public Use
  Company Number: DE-TEVA-174905ISR

PATIENT
  Sex: Female

DRUGS (5)
  1. DOXORUBICIN HCL [Suspect]
     Route: 041
     Dates: start: 20070329
  2. GRANISETRON HCL [Suspect]
     Route: 042
     Dates: start: 20070329, end: 20070329
  3. PEGFILGRASTIM [Suspect]
     Route: 058
     Dates: start: 20070329, end: 20070630
  4. DOCETAXEL [Suspect]
     Route: 042
     Dates: start: 20070329
  5. CYCLOPHOSPHAMIDE [Suspect]
     Route: 042
     Dates: start: 20070329

REACTIONS (2)
  - HEADACHE [None]
  - NECK PAIN [None]
